FAERS Safety Report 6832910-X (Version None)
Quarter: 2010Q3

REPORT INFORMATION
  Report Type: 
  Country: None (occurrence: None)
  Receive Date: 20100712
  Receipt Date: 20070315
  Transmission Date: 20110219
  Serious: No
  Sender: FDA-Public Use
  Company Number: US-PFIZER INC-2007022990

PATIENT
  Sex: Female
  Weight: 55.79 kg

DRUGS (9)
  1. CHANTIX [Suspect]
     Indication: SMOKING CESSATION THERAPY
     Dates: start: 20070306
  2. TOPROL-XL [Concomitant]
  3. LOTREL [Concomitant]
  4. FUROSEMIDE [Concomitant]
  5. THEO-24 [Concomitant]
  6. SPIRIVA [Concomitant]
  7. COMBIVENT [Concomitant]
  8. ACTONEL [Concomitant]
  9. TRAVATAN [Concomitant]
     Indication: GLAUCOMA
     Route: 047

REACTIONS (2)
  - ABDOMINAL PAIN UPPER [None]
  - NAUSEA [None]
